FAERS Safety Report 10440886 (Version 1)
Quarter: 2014Q3

REPORT INFORMATION
  Report Type: Other
  Country: GB (occurrence: GB)
  Receive Date: 20140909
  Receipt Date: 20140909
  Transmission Date: 20150326
  Serious: Yes (Hospitalization)
  Sender: FDA-Public Use
  Company Number: GB-SUN PHARMACEUTICAL INDUSTRIES LTD-2014SUN02010

PATIENT

DRUGS (3)
  1. VENLAFAXINE HYDROCHLORIDE 37.5MG TABLET [Suspect]
     Active Substance: VENLAFAXINE HYDROCHLORIDE
     Indication: DEPRESSION
     Dosage: 150 MG, UNK
     Route: 048
  2. FLUPENTIXOL DECANOATE [Concomitant]
     Active Substance: FLUPENTIXOL DECANOATE
  3. HYDROXYZINE [Concomitant]
     Active Substance: HYDROXYZINE\HYDROXYZINE HYDROCHLORIDE

REACTIONS (2)
  - Delusion [Recovering/Resolving]
  - Hallucination, auditory [Recovering/Resolving]

NARRATIVE: CASE EVENT DATE: 20140807
